FAERS Safety Report 21433746 (Version 5)
Quarter: 2023Q2

REPORT INFORMATION
  Report Type: Spontaneous
  Country: CA (occurrence: CA)
  Receive Date: 20221010
  Receipt Date: 20230612
  Transmission Date: 20230722
  Serious: Yes (Other)
  Sender: FDA-Public Use
  Company Number: CA-NOVARTISPH-NVSC2022CA226234

PATIENT
  Age: 40 Year
  Sex: Female

DRUGS (34)
  1. ADALIMUMAB [Suspect]
     Active Substance: ADALIMUMAB
     Indication: Colitis ulcerative
     Dosage: 80 MG, QW
     Route: 058
  2. ADALIMUMAB [Suspect]
     Active Substance: ADALIMUMAB
     Dosage: 80 MG, QW
     Route: 058
  3. INFLIXIMAB [Suspect]
     Active Substance: INFLIXIMAB
     Indication: Colitis ulcerative
     Dosage: UNK
     Route: 065
  4. BETAMETHASONE DIPROPIONATE [Suspect]
     Active Substance: BETAMETHASONE DIPROPIONATE
     Indication: Product used for unknown indication
     Dosage: UNK
     Route: 065
  5. DESOXIMETASONE [Suspect]
     Active Substance: DESOXIMETASONE
     Indication: Product used for unknown indication
     Dosage: UNK
     Route: 065
  6. ENTYVIO [Suspect]
     Active Substance: VEDOLIZUMAB
     Indication: Colitis ulcerative
     Dosage: 300 MG
     Route: 042
  7. ENTYVIO [Suspect]
     Active Substance: VEDOLIZUMAB
     Dosage: 300 MG
     Route: 042
  8. ENTYVIO [Suspect]
     Active Substance: VEDOLIZUMAB
     Dosage: 300 MG
     Route: 042
  9. ENTYVIO [Suspect]
     Active Substance: VEDOLIZUMAB
     Dosage: 300 MG (1 EVERY 8 WEEKS)
     Route: 042
  10. MERCAPTOPURINE [Suspect]
     Active Substance: MERCAPTOPURINE
     Indication: Colitis ulcerative
     Dosage: UNK
     Route: 065
  11. MESALAMINE [Suspect]
     Active Substance: MESALAMINE
     Indication: Colitis ulcerative
     Dosage: UNK
     Route: 048
  12. MESALAMINE [Suspect]
     Active Substance: MESALAMINE
     Dosage: UNK
     Route: 054
  13. METHYLPREDNISOLONE [Suspect]
     Active Substance: METHYLPREDNISOLONE
     Indication: Colitis ulcerative
     Dosage: UNK
     Route: 042
  14. PREDNISOLONE [Suspect]
     Active Substance: PREDNISOLONE
     Indication: Colitis ulcerative
     Dosage: UNK
     Route: 042
  15. PREDNISOLONE [Suspect]
     Active Substance: PREDNISOLONE
     Dosage: 10 MG, BID
     Route: 048
  16. PREDNISOLONE [Suspect]
     Active Substance: PREDNISOLONE
     Dosage: UNK
     Route: 048
  17. PREDNISONE [Suspect]
     Active Substance: PREDNISONE
     Indication: Colitis ulcerative
     Dosage: 1 DOSAGE FORM, QD
     Route: 048
  18. PREDNISONE [Suspect]
     Active Substance: PREDNISONE
     Dosage: 40 MG
     Route: 065
  19. PREDNISONE [Suspect]
     Active Substance: PREDNISONE
     Dosage: 10 MG, QD
     Route: 048
  20. PREDNISONE [Suspect]
     Active Substance: PREDNISONE
     Dosage: 1 DOSAGE FORM, QD
     Route: 048
  21. PREDNISONE [Suspect]
     Active Substance: PREDNISONE
     Dosage: UNK, QD
     Route: 048
  22. TOFACITINIB [Suspect]
     Active Substance: TOFACITINIB
     Indication: Colitis ulcerative
     Dosage: 10 MG, Q12H (2 EVERY 1 DAYS)
     Route: 048
  23. TOFACITINIB [Suspect]
     Active Substance: TOFACITINIB
     Dosage: 10 MG, BID
     Route: 048
  24. TOFACITINIB [Suspect]
     Active Substance: TOFACITINIB
     Dosage: 10 MG
     Route: 048
  25. USTEKINUMAB [Suspect]
     Active Substance: USTEKINUMAB
     Indication: Colitis ulcerative
     Dosage: UNK
     Route: 065
  26. USTEKINUMAB [Suspect]
     Active Substance: USTEKINUMAB
     Dosage: UNK
     Route: 065
  27. VEDOLIZUMAB [Suspect]
     Active Substance: VEDOLIZUMAB
     Indication: Colitis ulcerative
     Dosage: 300 MG (1 EVERY 8 WEEKS)
     Route: 042
  28. RALTEGRAVIR [Concomitant]
     Active Substance: RALTEGRAVIR
     Indication: HIV infection
     Dosage: 400 MG, BID (2 EVERY 1 DAYS)
     Route: 048
  29. RALTEGRAVIR [Concomitant]
     Active Substance: RALTEGRAVIR
     Dosage: UNK
     Route: 048
  30. RALTEGRAVIR [Concomitant]
     Active Substance: RALTEGRAVIR
     Dosage: 400 MG, BID
     Route: 048
  31. EMTRICITABINE [Concomitant]
     Active Substance: EMTRICITABINE
     Indication: HIV infection
     Dosage: 1 DOSAGE FORM, QD
     Route: 048
  32. EMTRICITABINE [Concomitant]
     Active Substance: EMTRICITABINE
     Dosage: 200 MG, QD
     Route: 048
  33. TRUVADA [Concomitant]
     Active Substance: EMTRICITABINE\TENOFOVIR DISOPROXIL FUMARATE
     Indication: HIV infection
     Dosage: 10 MG, QD
     Route: 048
  34. TRUVADA [Concomitant]
     Active Substance: EMTRICITABINE\TENOFOVIR DISOPROXIL FUMARATE
     Dosage: UNK, QD
     Route: 065

REACTIONS (13)
  - Central obesity [Unknown]
  - Cushing^s syndrome [Unknown]
  - Cushingoid [Unknown]
  - Cataract [Unknown]
  - Bacterial vulvovaginitis [Unknown]
  - Furuncle [Unknown]
  - Weight increased [Unknown]
  - Escherichia infection [Unknown]
  - Bacillus infection [Unknown]
  - Cellulitis [Unknown]
  - Colitis ulcerative [Unknown]
  - Therapy non-responder [Unknown]
  - Drug ineffective [Unknown]
